FAERS Safety Report 19615276 (Version 2)
Quarter: 2022Q1

REPORT INFORMATION
  Report Type: Spontaneous
  Country: US (occurrence: US)
  Receive Date: 20210727
  Receipt Date: 20220307
  Transmission Date: 20220424
  Serious: No
  Sender: FDA-Public Use
  Company Number: US-PFIZER INC-2021612380

PATIENT
  Age: 44 Year
  Sex: Female

DRUGS (1)
  1. XELJANZ [Suspect]
     Active Substance: TOFACITINIB CITRATE
     Indication: Rheumatoid arthritis
     Dosage: 5 MG, 2X/DAY
     Route: 048
     Dates: start: 20210524

REACTIONS (4)
  - Dysstasia [Recovering/Resolving]
  - Joint swelling [Recovered/Resolved]
  - Adjustment disorder [Unknown]
  - Depression [Unknown]

NARRATIVE: CASE EVENT DATE: 20210524
